FAERS Safety Report 9528661 (Version 1)
Quarter: 2013Q2

REPORT INFORMATION
  Report Type: Spontaneous
  Country: US (occurrence: None)
  Receive Date: 20130402
  Receipt Date: 20130402
  Transmission Date: 20140414
  Serious: Yes (Other)
  Sender: FDA-Public Use
  Company Number: RB-47225-2012

PATIENT
  Age: 27 Year
  Sex: Female

DRUGS (1)
  1. SUBOXONE [Suspect]
     Indication: DRUG DEPENDENCE
     Dosage: (SUBOXONE FILM; DOSING DETAILS UNKNOWN SUBLINGUAL)
     Route: 060

REACTIONS (2)
  - Hepatic enzyme increased [None]
  - Fatigue [None]
